FAERS Safety Report 25754814 (Version 2)
Quarter: 2025Q3

REPORT INFORMATION
  Report Type: Spontaneous
  Country: KR (occurrence: KR)
  Receive Date: 20250903
  Receipt Date: 20250919
  Transmission Date: 20251020
  Serious: Yes (Other)
  Sender: SANOFI AVENTIS
  Company Number: KR-DialogSolutions-SAAVPROD-PI815155-C1

PATIENT
  Age: 44 Year
  Sex: Male

DRUGS (2)
  1. DUPILUMAB [Suspect]
     Active Substance: DUPILUMAB
     Indication: Dermatitis atopic
     Route: 058
     Dates: start: 20230130
  2. CYCLOSPORINE [Suspect]
     Active Substance: CYCLOSPORINE
     Indication: Dermatitis atopic

REACTIONS (3)
  - Onychomycosis [Recovering/Resolving]
  - Nail disorder [Recovering/Resolving]
  - Nail discolouration [Recovering/Resolving]

NARRATIVE: CASE EVENT DATE: 20240513
